FAERS Safety Report 7814747-8 (Version None)
Quarter: 2011Q4

REPORT INFORMATION
  Report Type: 
  Country: None (occurrence: None)
  Receive Date: 20111012
  Receipt Date: 20111004
  Transmission Date: 20120403
  Serious: Yes (Disabling)
  Sender: FDA-Public Use
  Company Number: 959416

PATIENT
  Age: 75 Year
  Sex: Male
  Weight: 72 kg

DRUGS (7)
  1. ASPIRIN [Concomitant]
  2. IRINOTECAN HCL [Suspect]
     Indication: PRODUCT USED FOR UNKNOWN INDICATION
     Dosage: 260 MG; 6/6 CYCLICAL, UNKNOWN, INTRAVENOUS;320 MG; 5/5 CYCLICAL (UNKNOWN)
     Route: 042
     Dates: start: 20101220
  3. FLUOROURACIL [Suspect]
     Indication: PRODUCT USED FOR UNKNOWN INDICATION
     Dosage: 2100 MG; 6/6 CYCLICAL, UNKNOWN, UNKNOWN; 2800 MG; 3/3 CYCLICAL (UNKNOWN); 600 MG (UNKNOWN)
     Dates: start: 20101220, end: 20101220
  4. FLUOROURACIL [Suspect]
     Indication: PRODUCT USED FOR UNKNOWN INDICATION
     Dosage: 2100 MG; 6/6 CYCLICAL, UNKNOWN, UNKNOWN; 2800 MG; 3/3 CYCLICAL (UNKNOWN); 600 MG (UNKNOWN)
     Dates: start: 20110104
  5. FLUOROURACIL [Suspect]
     Indication: PRODUCT USED FOR UNKNOWN INDICATION
     Dosage: 2100 MG; 6/6 CYCLICAL, UNKNOWN, UNKNOWN; 2800 MG; 3/3 CYCLICAL (UNKNOWN); 600 MG (UNKNOWN)
     Dates: start: 20110413
  6. ONDANSETRON [Concomitant]
  7. DEXAMETHASONE [Concomitant]

REACTIONS (1)
  - PULMONARY FIBROSIS [None]
